FAERS Safety Report 4657456-9 (Version None)
Quarter: 2005Q2

REPORT INFORMATION
  Report Type: 
  Country: None (occurrence: None)
  Receive Date: 20050509
  Receipt Date: 20050509
  Transmission Date: 20051028
  Serious: Yes (Hospitalization, Disabling)
  Sender: FDA-Public Use
  Company Number: None

PATIENT
  Age: 66 Year
  Sex: Female
  Weight: 95.2554 kg

DRUGS (6)
  1. TOPAMAX [Suspect]
     Indication: KELOID SCAR
     Dosage: 25 MG, 1 TAB DAILY, ORALLY
     Route: 048
     Dates: start: 20041215, end: 20041221
  2. LIPITOR [Concomitant]
  3. TRICOR [Concomitant]
  4. ZETIA [Concomitant]
  5. ASPIRIN [Concomitant]
  6. FISH OIL [Concomitant]

REACTIONS (10)
  - ACCOMMODATION DISORDER [None]
  - BLINDNESS [None]
  - CATARACT [None]
  - EXOPHTHALMOS [None]
  - EYE DISORDER [None]
  - HEADACHE [None]
  - INTRAOCULAR PRESSURE INCREASED [None]
  - PAIN [None]
  - PHOTOPSIA [None]
  - VISION BLURRED [None]
